FAERS Safety Report 11887475 (Version 1)
Quarter: 2016Q1

REPORT INFORMATION
  Report Type: Spontaneous
  Country: TR (occurrence: TR)
  Receive Date: 20160105
  Receipt Date: 20160105
  Transmission Date: 20160526
  Serious: Yes (Other)
  Sender: FDA-Public Use
  Company Number: PHHY2015TR169862

PATIENT
  Age: 36 Year
  Sex: Male

DRUGS (2)
  1. SILVERDIN [Suspect]
     Active Substance: SILVER SULFADIAZINE
     Indication: THERMAL BURN
     Route: 061
  2. LIDOCAINE. [Suspect]
     Active Substance: LIDOCAINE
     Indication: THERMAL BURN
     Route: 061

REACTIONS (3)
  - Scab [Recovered/Resolved with Sequelae]
  - Skin ulcer [Recovered/Resolved with Sequelae]
  - Argyria [Recovered/Resolved with Sequelae]
